FAERS Safety Report 12977098 (Version 2)
Quarter: 2017Q1

REPORT INFORMATION
  Report Type: Spontaneous
  Country: DK (occurrence: DK)
  Receive Date: 20161128
  Receipt Date: 20170120
  Transmission Date: 20170428
  Serious: Yes (Other)
  Sender: FDA-Public Use
  Company Number: DK-STRIDES ARCOLAB LIMITED-2016SP018075

PATIENT

DRUGS (10)
  1. VITAMIN D                          /00107901/ [Concomitant]
     Active Substance: ERGOCALCIFEROL
     Indication: VITAMIN D DEFICIENCY
  2. ZINC. [Concomitant]
     Active Substance: ZINC
     Indication: VITAMIN D DEFICIENCY
  3. MAGNESIUM [Concomitant]
     Active Substance: MAGNESIUM
     Indication: MALABSORPTION
     Dosage: UNK
  4. VITAMIN D                          /00107901/ [Concomitant]
     Active Substance: ERGOCALCIFEROL
     Indication: MALABSORPTION
     Dosage: 25 ?G, DAILY
  5. MAGNESIUM [Concomitant]
     Active Substance: MAGNESIUM
     Indication: VITAMIN D DEFICIENCY
  6. DICLOFENAC [Suspect]
     Active Substance: DICLOFENAC
     Indication: ARTHRALGIA
     Dosage: 200 MG, UNK
  7. CALCIUM [Concomitant]
     Active Substance: CALCIUM
     Indication: MALABSORPTION
     Dosage: UNK
  8. ZINC. [Concomitant]
     Active Substance: ZINC
     Indication: MALABSORPTION
     Dosage: UNK
  9. CALCIUM [Concomitant]
     Active Substance: CALCIUM
     Indication: VITAMIN D DEFICIENCY
  10. IBUPROFEN. [Suspect]
     Active Substance: IBUPROFEN
     Indication: ARTHRALGIA
     Dosage: 400 MG, UNK

REACTIONS (4)
  - Myalgia [Recovered/Resolved]
  - Fatigue [Recovered/Resolved]
  - Extraocular muscle paresis [Recovered/Resolved]
  - Hypophosphataemia [Recovered/Resolved]
